FAERS Safety Report 5335492-7 (Version None)
Quarter: 2007Q2

REPORT INFORMATION
  Report Type: 
  Country: None (occurrence: None)
  Receive Date: 20070322
  Receipt Date: 20070102
  Transmission Date: 20071010
  Serious: No
  Sender: FDA-Public Use
  Company Number: 2007US000032

PATIENT
  Age: 77 Year
  Sex: Female

DRUGS (10)
  1. VESICARE [Suspect]
     Indication: HYPERTONIC BLADDER
     Dosage: SEE IMAGE
     Route: 048
     Dates: start: 20060501
  2. LOVASTATIN [Concomitant]
  3. FOLGARD [Concomitant]
  4. VICODIN [Concomitant]
  5. COUMADIN [Concomitant]
  6. ZOLOFT [Concomitant]
  7. TOPROL-XL [Concomitant]
  8. RESTORIL [Concomitant]
  9. AMOXICILLIN (AMOXICILLIN TRIHYDRATE) [Concomitant]
  10. VALIUM (SODIUM BENZOATE, DIAZEPAM, BENZYL ALCOHOL) [Concomitant]

REACTIONS (3)
  - DRUG INEFFECTIVE [None]
  - DRY MOUTH [None]
  - DYSPHONIA [None]
